FAERS Safety Report 5763241-7 (Version None)
Quarter: 2008Q2

REPORT INFORMATION
  Report Type: 
  Country: None (occurrence: None)
  Receive Date: 20080602
  Receipt Date: 20080104
  Transmission Date: 20081010
  Serious: No
  Sender: FDA-Public Use
  Company Number: PHEH2008US00573

PATIENT
  Sex: Male

DRUGS (1)
  1. TEKTURNA [Suspect]
     Indication: HYPERTENSION
     Dosage: QD, ORAL
     Route: 048

REACTIONS (1)
  - DIZZINESS [None]
